FAERS Safety Report 8238356-4 (Version None)
Quarter: 2012Q1

REPORT INFORMATION
  Report Type: 
  Country: None (occurrence: None)
  Receive Date: 20120323
  Receipt Date: 20120319
  Transmission Date: 20120608
  Serious: Yes (Death, Other)
  Sender: FDA-Public Use
  Company Number: 2011SP048890

PATIENT
  Age: 40 Year
  Sex: Male
  Weight: 78 kg

DRUGS (28)
  1. TEMODAL [Suspect]
     Indication: ANAPLASTIC ASTROCYTOMA
     Dosage: 75 MG/M2;QD;PO 150 MG/M2;QD;PO 200 MG/M2;QD;PO
     Route: 048
     Dates: start: 20080730, end: 20080803
  2. TEMODAL [Suspect]
     Indication: ANAPLASTIC ASTROCYTOMA
     Dosage: 75 MG/M2;QD;PO 150 MG/M2;QD;PO 200 MG/M2;QD;PO
     Route: 048
     Dates: start: 20071108, end: 20071112
  3. TEMODAL [Suspect]
     Indication: ANAPLASTIC ASTROCYTOMA
     Dosage: 75 MG/M2;QD;PO 150 MG/M2;QD;PO 200 MG/M2;QD;PO
     Route: 048
     Dates: start: 20110518, end: 20110911
  4. TEMODAL [Suspect]
     Indication: ANAPLASTIC ASTROCYTOMA
     Dosage: 75 MG/M2;QD;PO 150 MG/M2;QD;PO 200 MG/M2;QD;PO
     Route: 048
     Dates: start: 20080604, end: 20080608
  5. TEMODAL [Suspect]
     Indication: ANAPLASTIC ASTROCYTOMA
     Dosage: 75 MG/M2;QD;PO 150 MG/M2;QD;PO 200 MG/M2;QD;PO
     Route: 048
     Dates: start: 20100416, end: 20100420
  6. TEMODAL [Suspect]
     Indication: ANAPLASTIC ASTROCYTOMA
     Dosage: 75 MG/M2;QD;PO 150 MG/M2;QD;PO 200 MG/M2;QD;PO
     Route: 048
     Dates: start: 20080110, end: 20080114
  7. TEMODAL [Suspect]
     Indication: ANAPLASTIC ASTROCYTOMA
     Dosage: 75 MG/M2;QD;PO 150 MG/M2;QD;PO 200 MG/M2;QD;PO
     Route: 048
     Dates: start: 20090218, end: 20090222
  8. TEMODAL [Suspect]
     Indication: ANAPLASTIC ASTROCYTOMA
     Dosage: 75 MG/M2;QD;PO 150 MG/M2;QD;PO 200 MG/M2;QD;PO
     Route: 048
     Dates: start: 20100218, end: 20100222
  9. TEMODAL [Suspect]
     Indication: ANAPLASTIC ASTROCYTOMA
     Dosage: 75 MG/M2;QD;PO 150 MG/M2;QD;PO 200 MG/M2;QD;PO
     Route: 048
     Dates: start: 20070906, end: 20070910
  10. TEMODAL [Suspect]
     Indication: ANAPLASTIC ASTROCYTOMA
     Dosage: 75 MG/M2;QD;PO 150 MG/M2;QD;PO 200 MG/M2;QD;PO
     Route: 048
     Dates: start: 20090520, end: 20090524
  11. TEMODAL [Suspect]
     Indication: ANAPLASTIC ASTROCYTOMA
     Dosage: 75 MG/M2;QD;PO 150 MG/M2;QD;PO 200 MG/M2;QD;PO
     Route: 048
     Dates: start: 20101201, end: 20101205
  12. TEMODAL [Suspect]
     Indication: ANAPLASTIC ASTROCYTOMA
     Dosage: 75 MG/M2;QD;PO 150 MG/M2;QD;PO 200 MG/M2;QD;PO
     Route: 048
     Dates: start: 20101229, end: 20110102
  13. TEMODAL [Suspect]
     Indication: ANAPLASTIC ASTROCYTOMA
     Dosage: 75 MG/M2;QD;PO 150 MG/M2;QD;PO 200 MG/M2;QD;PO
     Route: 048
     Dates: start: 20070604, end: 20070715
  14. TEMODAL [Suspect]
     Indication: ANAPLASTIC ASTROCYTOMA
     Dosage: 75 MG/M2;QD;PO 150 MG/M2;QD;PO 200 MG/M2;QD;PO
     Route: 048
     Dates: start: 20090812, end: 20090816
  15. TEMODAL [Suspect]
     Indication: ANAPLASTIC ASTROCYTOMA
     Dosage: 75 MG/M2;QD;PO 150 MG/M2;QD;PO 200 MG/M2;QD;PO
     Route: 048
     Dates: start: 20091207, end: 20091211
  16. TEMODAL [Suspect]
     Indication: ANAPLASTIC ASTROCYTOMA
     Dosage: 75 MG/M2;QD;PO 150 MG/M2;QD;PO 200 MG/M2;QD;PO
     Route: 048
     Dates: start: 20100707, end: 20100711
  17. TEMODAL [Suspect]
     Indication: ANAPLASTIC ASTROCYTOMA
     Dosage: 75 MG/M2;QD;PO 150 MG/M2;QD;PO 200 MG/M2;QD;PO
     Route: 048
     Dates: start: 20110323, end: 20110327
  18. TEMODAL [Suspect]
     Indication: ANAPLASTIC ASTROCYTOMA
     Dosage: 75 MG/M2;QD;PO 150 MG/M2;QD;PO 200 MG/M2;QD;PO
     Route: 048
     Dates: start: 20080306, end: 20080310
  19. TEMODAL [Suspect]
     Indication: ANAPLASTIC ASTROCYTOMA
     Dosage: 75 MG/M2;QD;PO 150 MG/M2;QD;PO 200 MG/M2;QD;PO
     Route: 048
     Dates: start: 20091028, end: 20091101
  20. TEMODAL [Suspect]
     Indication: ANAPLASTIC ASTROCYTOMA
     Dosage: 75 MG/M2;QD;PO 150 MG/M2;QD;PO 200 MG/M2;QD;PO
     Route: 048
     Dates: start: 20110126, end: 20110130
  21. TEMODAL [Suspect]
     Indication: ANAPLASTIC ASTROCYTOMA
     Dosage: 75 MG/M2;QD;PO 150 MG/M2;QD;PO 200 MG/M2;QD;PO
     Route: 048
     Dates: start: 20110223, end: 20110227
  22. TEMODAL [Suspect]
     Indication: ANAPLASTIC ASTROCYTOMA
     Dosage: 75 MG/M2;QD;PO 150 MG/M2;QD;PO 200 MG/M2;QD;PO
     Route: 048
     Dates: start: 20110420, end: 20110424
  23. LOXONIN [Concomitant]
  24. ALEVIATAN [Concomitant]
  25. AMLODIPINE [Concomitant]
  26. ALLOPURINOL [Concomitant]
  27. STOGAR [Concomitant]
  28. LIVALO [Concomitant]

REACTIONS (5)
  - VISUAL IMPAIRMENT [None]
  - BRAIN OEDEMA [None]
  - BRAIN NEOPLASM [None]
  - CONDITION AGGRAVATED [None]
  - DISEASE PROGRESSION [None]
